FAERS Safety Report 18632556 (Version 1)
Quarter: 2020Q4

REPORT INFORMATION
  Report Type: Spontaneous
  Country: IN (occurrence: IN)
  Receive Date: 20201218
  Receipt Date: 20201218
  Transmission Date: 20210114
  Serious: No
  Sender: FDA-Public Use
  Company Number: IN-LUPIN LIMITED-2020-10428

PATIENT
  Age: 32 Year
  Sex: Female

DRUGS (3)
  1. BISOPROLOL [Suspect]
     Active Substance: BISOPROLOL
     Indication: STRESS CARDIOMYOPATHY
     Dosage: UNK
     Route: 065
  2. AMLODIPINE [Suspect]
     Active Substance: AMLODIPINE BESYLATE
     Indication: GESTATIONAL HYPERTENSION
     Dosage: UNK
     Route: 065
  3. ENOXAPARIN SODIUM. [Suspect]
     Active Substance: ENOXAPARIN SODIUM
     Indication: STRESS CARDIOMYOPATHY
     Dosage: 40 MILLIGRAM, UNK
     Route: 058

REACTIONS (1)
  - Maternal exposure during pregnancy [Unknown]
